FAERS Safety Report 26134309 (Version 1)
Quarter: 2025Q4

REPORT INFORMATION
  Report Type: Spontaneous
  Country: IN (occurrence: IN)
  Receive Date: 20251209
  Receipt Date: 20251209
  Transmission Date: 20260118
  Serious: No
  Sender: ABBVIE
  Company Number: IN-ABBVIE-6581047

PATIENT

DRUGS (1)
  1. COMBIGAN [Suspect]
     Active Substance: BRIMONIDINE TARTRATE\TIMOLOL MALEATE
     Indication: Product used for unknown indication
     Dosage: DOSAGE FORM: SUSPENSION/DROPS, COMBIGAN OPTHALMIC SOL 5ML
     Route: 047

REACTIONS (1)
  - No adverse event [Unknown]
